FAERS Safety Report 23141284 (Version 3)
Quarter: 2023Q4

REPORT INFORMATION
  Report Type: Report from Study
  Country: GB (occurrence: GB)
  Receive Date: 20231103
  Receipt Date: 20231208
  Transmission Date: 20240110
  Serious: Yes (Death)
  Sender: FDA-Public Use
  Company Number: GB-CELLTRION INC.-2023GB004209

PATIENT

DRUGS (19)
  1. BEVACIZUMAB [Suspect]
     Active Substance: BEVACIZUMAB
     Indication: Hepatocellular carcinoma
     Dosage: 1000 MG
     Route: 065
     Dates: start: 20220120
  2. ATEZOLIZUMAB [Suspect]
     Active Substance: ATEZOLIZUMAB
     Indication: Hepatocellular carcinoma
     Dosage: 1200 MG
     Route: 042
     Dates: start: 20220120
  3. AMLODIPINE [Concomitant]
     Active Substance: AMLODIPINE BESYLATE
     Dosage: 5 MG, QD
     Dates: start: 20220626
  4. ASPIRIN [Concomitant]
     Active Substance: ASPIRIN
     Dosage: 75 MG, QD
     Dates: start: 20211215
  5. ATORVASTATIN [Concomitant]
     Active Substance: ATORVASTATIN
     Dosage: 20 MG, QD (CUMULATIVE DOSE TO FIRST REACTION: 2519.1667 MG)
     Dates: start: 20220208
  6. ATORVASTATIN [Concomitant]
     Active Substance: ATORVASTATIN
     Dosage: 40 MG, QD (CUMULATIVE DOSE TO FIRST REACTION: 6958.3335 MG)
     Dates: start: 20211222
  7. CANDESARTAN [Concomitant]
     Active Substance: CANDESARTAN
     Dosage: 16 MG, QD (CUMULATIVE DOSE TO FIRST REACTION: 1343.3334 MG)
     Dates: start: 20220322
  8. CANDESARTAN [Concomitant]
     Active Substance: CANDESARTAN
     Dosage: 24 MG, QD (CUMULATIVE DOSE TO FIRST REACTION: 840.0 MG)
     Dates: start: 20220510, end: 20220725
  9. CANDESARTAN [Concomitant]
     Active Substance: CANDESARTAN
     Dosage: QD
     Dates: start: 20220726
  10. CLOBETASOL [Concomitant]
     Active Substance: CLOBETASOL
     Dosage: UNK
     Dates: start: 20220215
  11. OMEPRAZOLE [Concomitant]
     Active Substance: OMEPRAZOLE
     Indication: Prophylaxis
     Dosage: 15 MG, QD
     Dates: start: 20211215
  12. PREDNISOLONE [Concomitant]
     Active Substance: PREDNISOLONE
     Dosage: UNK, QD
     Dates: start: 20220513
  13. PREDNISOLONE [Concomitant]
     Active Substance: PREDNISOLONE
     Dosage: 40 MG, QD
     Dates: start: 20220519
  14. ACETAMINOPHEN [Concomitant]
     Active Substance: ACETAMINOPHEN
     Dosage: 1 G, ONCE AS REQUIRED
  15. CODEINE PHOSPHATE [Concomitant]
     Active Substance: CODEINE PHOSPHATE
     Dosage: 15 MG, ONCE AS REQUIRED
     Dates: start: 20220615
  16. CODEINE PHOSPHATE [Concomitant]
     Active Substance: CODEINE PHOSPHATE
     Dosage: UNK, ONCE AS REQUIRED
     Dates: start: 20220715
  17. AMOXICILLIN\CLAVULANATE POTASSIUM [Concomitant]
     Active Substance: AMOXICILLIN\CLAVULANATE POTASSIUM
     Dosage: 625 MG, THRICE A DAY
     Dates: start: 20220707
  18. GABAPENTIN [Concomitant]
     Active Substance: GABAPENTIN
     Dosage: 100 MG, THRICE A DAY
     Dates: start: 20220718
  19. CIPROFLOXACIN [Concomitant]
     Active Substance: CIPROFLOXACIN
     Dosage: UNK,  TWICE A DAY
     Dates: start: 20220721

REACTIONS (5)
  - Death [Fatal]
  - Skin ulcer [Recovered/Resolved]
  - Skin ulcer [Not Recovered/Not Resolved]
  - Pain [Recovering/Resolving]
  - Intentional product use issue [Unknown]

NARRATIVE: CASE EVENT DATE: 20220614
